FAERS Safety Report 11772792 (Version 1)
Quarter: 2015Q4

REPORT INFORMATION
  Report Type: Spontaneous
  Country: US (occurrence: US)
  Receive Date: 20151124
  Receipt Date: 20151124
  Transmission Date: 20160304
  Serious: No
  Sender: FDA-Public Use
  Company Number: US-MALLINCKRODT-T201404218

PATIENT
  Sex: Female

DRUGS (1)
  1. GABLOFEN [Suspect]
     Active Substance: BACLOFEN
     Indication: MUSCLE SPASTICITY
     Dosage: 724 MCG/DAY
     Route: 037

REACTIONS (3)
  - Device inversion [Recovered/Resolved]
  - Implant site extravasation [Unknown]
  - Cerebrospinal fluid leakage [Unknown]
